FAERS Safety Report 8379899-2 (Version None)
Quarter: 2012Q2

REPORT INFORMATION
  Report Type: 
  Country: None (occurrence: None)
  Receive Date: 20120523
  Receipt Date: 20120515
  Transmission Date: 20120825
  Serious: No
  Sender: FDA-Public Use
  Company Number: US-B.I. PHARMACEUTICALS,INC./RIDGEFIELD-2012-BP-10876BP

PATIENT
  Sex: Female

DRUGS (9)
  1. PRADAXA [Suspect]
     Indication: ATRIAL FIBRILLATION
     Dosage: 300 MG
     Route: 048
     Dates: start: 20120101
  2. BENICAR [Concomitant]
     Indication: HYPERTENSION
  3. ASPIRIN [Concomitant]
     Indication: CARDIAC DISORDER
     Dosage: 81 MG
     Route: 048
  4. CRESTOR [Concomitant]
     Indication: BLOOD CHOLESTEROL INCREASED
  5. IMDUR [Concomitant]
     Indication: CARDIAC DISORDER
  6. PLAVIX [Concomitant]
     Indication: CARDIAC DISORDER
     Dosage: 75 MG
     Route: 048
  7. PEPCID [Concomitant]
     Indication: DYSPEPSIA
  8. SPIRIVA [Suspect]
     Indication: PULMONARY HYPERTENSION
     Dosage: 18 MCG
     Route: 055
     Dates: start: 20111101
  9. TOPROL-XL [Concomitant]
     Indication: ATRIAL FIBRILLATION
     Dosage: 75 MG
     Route: 048

REACTIONS (1)
  - ALOPECIA [None]
